FAERS Safety Report 7281356-1 (Version None)
Quarter: 2011Q1

REPORT INFORMATION
  Report Type: 
  Country: None (occurrence: None)
  Receive Date: 20110203
  Receipt Date: 20110203
  Transmission Date: 20110831
  Serious: Yes (Hospitalization)
  Sender: FDA-Public Use
  Company Number: None

PATIENT
  Sex: Male
  Weight: 66.13 kg

DRUGS (13)
  1. ALIMTA [Suspect]
     Indication: NON-SMALL CELL LUNG CANCER METASTATIC
     Dosage: 500 MG M 2 1 X EVERY 3 WEEKS IV
     Route: 042
     Dates: start: 20101010, end: 20110120
  2. NEXIUM [Concomitant]
  3. DOCUSATE -COLACE- [Concomitant]
  4. ALFUZOSIN HCL -UROXATRAL- [Concomitant]
  5. OXYCODONE/ACETAMINOPHEN (PERCOCET) [Concomitant]
  6. ZOLPIDEM CR -AMBIEN CR- [Concomitant]
  7. PLAVIX [Concomitant]
  8. ZOLEDRONIC ACID IV [Concomitant]
  9. PEMETREXED DISODIUM IV [Concomitant]
  10. OXYCONTIN [Concomitant]
  11. FERROUS SULFATE TAB [Concomitant]
  12. ZOCOR [Concomitant]
  13. ALLEGRA [Concomitant]

REACTIONS (4)
  - CELLULITIS [None]
  - ANKLE FRACTURE [None]
  - DECREASED APPETITE [None]
  - DEEP VEIN THROMBOSIS [None]
